FAERS Safety Report 5284264-0 (Version None)
Quarter: 2007Q2

REPORT INFORMATION
  Report Type: 
  Country: None (occurrence: None)
  Receive Date: 20070403
  Receipt Date: 20070328
  Transmission Date: 20071010
  Serious: Yes (Death, Other)
  Sender: FDA-Public Use
  Company Number: PHBS2007US05492

PATIENT
  Age: 49 Year
  Sex: Male

DRUGS (1)
  1. CYCLOSPORINE [Suspect]
     Indication: ANGIOIMMUNOBLASTIC T-CELL LYMPHOMA RECURRENT
     Route: 048

REACTIONS (8)
  - B-LYMPHOCYTE COUNT INCREASED [None]
  - COMPLICATIONS OF BONE MARROW TRANSPLANT [None]
  - LEUKOCYTOSIS [None]
  - LYMPHOPROLIFERATIVE DISORDER [None]
  - MALIGNANT NEOPLASM PROGRESSION [None]
  - PHARYNGITIS [None]
  - PLASMABLAST COUNT INCREASED [None]
  - STEM CELL TRANSPLANT [None]
